FAERS Safety Report 24334447 (Version 1)
Quarter: 2024Q3

REPORT INFORMATION
  Report Type: Spontaneous
  Country: US (occurrence: None)
  Receive Date: 20240918
  Receipt Date: 20240918
  Transmission Date: 20241017
  Serious: Yes (Disabling)
  Sender: Public
  Company Number: None

PATIENT
  Age: 62 Year
  Sex: Male
  Weight: 58.95 kg

DRUGS (9)
  1. OPDUALAG [Suspect]
     Active Substance: NIVOLUMAB\RELATLIMAB
     Indication: Metastatic ocular melanoma
     Dosage: OTHER QUANTITY : 480 MILIGRAMS;?OTHER FREQUENCY : ONCE EVERY 4 WEEKS;?
     Route: 042
     Dates: start: 20240220, end: 20240416
  2. PROPRANOLOL [Concomitant]
     Active Substance: PROPRANOLOL HYDROCHLORIDE
  3. CREON [Concomitant]
     Active Substance: PANCRELIPASE AMYLASE\PANCRELIPASE LIPASE\PANCRELIPASE PROTEASE
  4. BUDESONIDE [Concomitant]
     Active Substance: BUDESONIDE
  5. Temezapam [Concomitant]
  6. COLESTIPOL [Concomitant]
     Active Substance: COLESTIPOL
  7. TADALAFIL [Concomitant]
     Active Substance: TADALAFIL
  8. LEVOTHYROXINE [Concomitant]
     Active Substance: LEVOTHYROXINE\LEVOTHYROXINE SODIUM
  9. VITAMINS [Concomitant]
     Active Substance: VITAMINS

REACTIONS (11)
  - Diarrhoea [None]
  - Weight decreased [None]
  - Colitis microscopic [None]
  - Haemorrhoids [None]
  - Mucosal disorder [None]
  - Intestinal mucosal atrophy [None]
  - Hypothyroidism [None]
  - Pancreatic failure [None]
  - Anaemia [None]
  - Purpura [None]
  - Vitiligo [None]

NARRATIVE: CASE EVENT DATE: 20240319
